FAERS Safety Report 17241380 (Version 3)
Quarter: 2020Q2

REPORT INFORMATION
  Report Type: Report from Study
  Country: KR (occurrence: KR)
  Receive Date: 20200107
  Receipt Date: 20200430
  Transmission Date: 20200713
  Serious: Yes (Other)
  Sender: FDA-Public Use
  Company Number: KR-ASTELLAS-2020US000113

PATIENT
  Age: 74 Year
  Sex: Male

DRUGS (6)
  1. ENZALUTAMIDE [Suspect]
     Active Substance: ENZALUTAMIDE
     Route: 048
     Dates: start: 20190618
  2. ENZALUTAMIDE [Suspect]
     Active Substance: ENZALUTAMIDE
     Indication: HORMONE-REFRACTORY PROSTATE CANCER
     Route: 048
     Dates: start: 20181207, end: 20190520
  3. ENZALUTAMIDE [Suspect]
     Active Substance: ENZALUTAMIDE
     Dosage: 80 MG, ONCE DAILY (PSA INCREASED)
     Route: 048
     Dates: start: 20190521, end: 20190617
  4. CELEBREX [Concomitant]
     Active Substance: CELECOXIB
     Indication: PROSTATE CANCER
     Dosage: 200 MG (DAILY DOSE)
     Route: 048
  5. HARDCAL [Concomitant]
     Active Substance: CALCIUM CARBONATE\CHOLECALCIFEROL
     Indication: PROPHYLAXIS
     Route: 048
  6. LEUPLIN [Concomitant]
     Active Substance: LEUPROLIDE ACETATE
     Indication: PROSTATE CANCER
     Route: 065

REACTIONS (8)
  - Dizziness [Recovering/Resolving]
  - Diabetes mellitus [Recovering/Resolving]
  - Fatigue [Recovering/Resolving]
  - Dry mouth [Recovering/Resolving]
  - Dysphonia [Recovering/Resolving]
  - Discomfort [Recovering/Resolving]
  - Headache [Recovering/Resolving]
  - Decreased appetite [Recovering/Resolving]

NARRATIVE: CASE EVENT DATE: 20181221
